FAERS Safety Report 10037358 (Version 1)
Quarter: 2014Q1

REPORT INFORMATION
  Report Type: Spontaneous
  Country: US (occurrence: None)
  Receive Date: 20140325
  Receipt Date: 20140325
  Transmission Date: 20141002
  Serious: Yes (Other)
  Sender: FDA-Public Use
  Company Number: None

PATIENT
  Sex: Female
  Weight: 54.43 kg

DRUGS (3)
  1. LIDOCAINE [Suspect]
  2. PROPOFOL [Suspect]
  3. EXTRA STRENGTH TYLENOL [Concomitant]

REACTIONS (9)
  - Hypoaesthesia [None]
  - Myalgia [None]
  - Dizziness [None]
  - Cough [None]
  - Vision blurred [None]
  - Dizziness [None]
  - Asthenia [None]
  - Movement disorder [None]
  - Nightmare [None]
